FAERS Safety Report 7618465-0 (Version None)
Quarter: 2011Q3

REPORT INFORMATION
  Report Type: 
  Country: None (occurrence: None)
  Receive Date: 20110718
  Receipt Date: 20110714
  Transmission Date: 20111222
  Serious: Yes (Hospitalization, Other)
  Sender: FDA-Public Use
  Company Number: US-MERCK-1010USA02481

PATIENT
  Age: 59 Year
  Sex: Female

DRUGS (6)
  1. FOSAMAX [Suspect]
     Indication: OSTEOPENIA
     Route: 048
     Dates: start: 20030101, end: 20081201
  2. CALCIUM (UNSPECIFIED) [Concomitant]
     Route: 065
  3. MULTIVITAMIN [Concomitant]
     Route: 065
  4. FOSAMAX PLUS D [Suspect]
     Route: 048
     Dates: start: 20030101, end: 20070101
  5. VITAMINS (UNSPECIFIED) [Concomitant]
     Route: 065
  6. FOSAMAX [Suspect]
     Route: 048
     Dates: start: 20080211, end: 20081001

REACTIONS (19)
  - ABNORMAL LOSS OF WEIGHT [None]
  - HAEMORRHAGIC DIATHESIS [None]
  - BREAST DISORDER [None]
  - FEMUR FRACTURE [None]
  - SYNOVIAL RUPTURE [None]
  - HIGH TURNOVER OSTEOPATHY [None]
  - TENDERNESS [None]
  - JOINT EFFUSION [None]
  - TOOTH FRACTURE [None]
  - OSTEOSCLEROSIS [None]
  - LOWER LIMB FRACTURE [None]
  - APPENDICITIS [None]
  - POLLAKIURIA [None]
  - MENISCUS LESION [None]
  - VULVOVAGINAL DRYNESS [None]
  - GALLBLADDER DISORDER [None]
  - TIBIA FRACTURE [None]
  - MICTURITION URGENCY [None]
  - INCREASED TENDENCY TO BRUISE [None]
